FAERS Safety Report 5674248-2 (Version None)
Quarter: 2008Q1

REPORT INFORMATION
  Report Type: 
  Country: None (occurrence: None)
  Receive Date: 20080320
  Receipt Date: 20080313
  Transmission Date: 20080703
  Serious: Yes (Other)
  Sender: FDA-Public Use
  Company Number: JP-BAYER-200810476BYL

PATIENT
  Age: 49 Year
  Sex: Female

DRUGS (3)
  1. MIRENA [Suspect]
     Dosage: AS USED: 20 ?G/D  UNIT DOSE: 52 MG
     Route: 015
     Dates: start: 20070601
  2. TRIQUILAR [Concomitant]
     Indication: MENORRHAGIA
     Route: 048
     Dates: start: 20050101
  3. A MIDDLE-DOSE ORAL CONTRACEPTIVE PREPARATION [Concomitant]
     Indication: METRORRHAGIA
     Route: 048
     Dates: start: 20071201

REACTIONS (2)
  - METRORRHAGIA [None]
  - UTERINE CANCER [None]
